FAERS Safety Report 8880393 (Version 1)
Quarter: 2012Q4

REPORT INFORMATION
  Report Type: 
  Country: US (occurrence: US)
  Receive Date: 20121031
  Receipt Date: 20121031
  Transmission Date: 20130627
  Serious: Yes (Other)
  Sender: FDA-Public Use
  Company Number: US-ASTRAZENECA-2012SE80350

PATIENT
  Sex: Male

DRUGS (8)
  1. BRILINTA [Suspect]
     Route: 048
  2. COREG [Concomitant]
  3. LASIX [Concomitant]
  4. AMIODARONE [Concomitant]
  5. ACE INHIBITOR [Concomitant]
  6. LIPITOR [Concomitant]
  7. ALLEGRA [Concomitant]
  8. SPIRIVA [Concomitant]

REACTIONS (2)
  - Pulmonary oedema [Unknown]
  - Dyspnoea [Unknown]
